FAERS Safety Report 24913655 (Version 2)
Quarter: 2025Q1

REPORT INFORMATION
  Report Type: Spontaneous
  Country: US (occurrence: US)
  Receive Date: 20250201
  Receipt Date: 20250203
  Transmission Date: 20250409
  Serious: Yes (Hospitalization)
  Sender: MERCK
  Company Number: US-SANDOZ INC.-SDZ2024US024324

PATIENT
  Sex: Female
  Weight: 84.7 kg

DRUGS (25)
  1. WINREVAIR [Suspect]
     Active Substance: SOTATERCEPT-CSRK
     Indication: Pulmonary arterial hypertension
     Dosage: 1.2 MILLILITER (0.3 MILLIGRAM/KILOGRAM), STRENGTH: 60 MG
     Route: 058
     Dates: start: 20241021
  2. TREPROSTINIL [Suspect]
     Active Substance: TREPROSTINIL
     Indication: Pulmonary arterial hypertension
     Route: 065
  3. TREPROSTINIL [Suspect]
     Active Substance: TREPROSTINIL
     Route: 042
  4. TREPROSTINIL [Suspect]
     Active Substance: TREPROSTINIL
     Route: 042
  5. TREPROSTINIL [Suspect]
     Active Substance: TREPROSTINIL
     Route: 042
  6. TREPROSTINIL [Suspect]
     Active Substance: TREPROSTINIL
     Route: 042
  7. TREPROSTINIL [Suspect]
     Active Substance: TREPROSTINIL
     Route: 042
     Dates: start: 20240301
  8. TYVASO DPI [Suspect]
     Active Substance: TREPROSTINIL
     Route: 065
  9. LORATADINE [Concomitant]
     Active Substance: LORATADINE
  10. JARDIANCE [Concomitant]
     Active Substance: EMPAGLIFLOZIN
  11. ALBUTEROL SULFATE [Concomitant]
     Active Substance: ALBUTEROL SULFATE
  12. ACETAMINOPHEN [Concomitant]
     Active Substance: ACETAMINOPHEN
  13. OXYGEN [Concomitant]
     Active Substance: OXYGEN
  14. LEVOTHYROXINE SODIUM [Concomitant]
     Active Substance: LEVOTHYROXINE SODIUM
  15. FUROSEMIDE [Concomitant]
     Active Substance: FUROSEMIDE
  16. OPSUMIT [Concomitant]
     Active Substance: MACITENTAN
  17. SPIRONOLACTONE [Concomitant]
     Active Substance: SPIRONOLACTONE
  18. SILDENAFIL CITRATE [Concomitant]
     Active Substance: SILDENAFIL CITRATE
  19. ONDANSETRON HYDROCHLORIDE [Concomitant]
     Active Substance: ONDANSETRON HYDROCHLORIDE
  20. METOPROLOL SUCCINATE [Concomitant]
     Active Substance: METOPROLOL SUCCINATE
  21. MAGNESIUM OXIDE [Concomitant]
     Active Substance: MAGNESIUM OXIDE
  22. ELIQUIS [Concomitant]
     Active Substance: APIXABAN
  23. VITAMINS NOS [Concomitant]
     Active Substance: VITAMINS
  24. FAMOTIDINE [Concomitant]
     Active Substance: FAMOTIDINE
  25. VITAMINS [Concomitant]
     Active Substance: VITAMINS

REACTIONS (12)
  - Injection site erythema [Unknown]
  - Injection site bruising [Unknown]
  - Back pain [Unknown]
  - Hot flush [Unknown]
  - Haemoglobin increased [Unknown]
  - Headache [Unknown]
  - Pain in extremity [Unknown]
  - Hypotension [Unknown]
  - Pain in jaw [Unknown]
  - Nausea [Unknown]
  - Diarrhoea [Unknown]
  - Injection site pruritus [Unknown]

NARRATIVE: CASE EVENT DATE: 20240101
